FAERS Safety Report 7811687-5 (Version None)
Quarter: 2011Q4

REPORT INFORMATION
  Report Type: 
  Country: None (occurrence: None)
  Receive Date: 20111013
  Receipt Date: 20111006
  Transmission Date: 20120403
  Serious: Yes (Hospitalization)
  Sender: FDA-Public Use
  Company Number: NL-NOVOPROD-331787

PATIENT

DRUGS (13)
  1. METFORMIN HYDROCHLORIDE [Concomitant]
     Dosage: 2
  2. DIGOXIN [Concomitant]
     Dosage: 1
  3. SINTROM [Concomitant]
  4. GLIMEPIRIDE [Concomitant]
     Dosage: 1
  5. SIMVASTATIN [Concomitant]
     Dosage: 1
  6. VICTOZA [Suspect]
     Indication: TYPE 2 DIABETES MELLITUS
     Dosage: 0.6 MG, QD
     Route: 065
     Dates: start: 20110516
  7. VICTOZA [Suspect]
     Dosage: 0.6 MG, QD
     Route: 065
     Dates: start: 20110621
  8. OMEPRAZOLE [Concomitant]
     Dosage: 1
  9. NOVOLOG [Concomitant]
     Indication: TYPE 2 DIABETES MELLITUS
  10. BUMETANIDE [Concomitant]
     Dosage: 1
  11. VICTOZA [Suspect]
     Dosage: 1.2 MG, QD
     Route: 065
     Dates: start: 20110617
  12. PERINDOPRIL ERBUMINE [Concomitant]
     Dosage: 1
  13. METOPROLOL RETARD GEA [Concomitant]
     Dosage: 1

REACTIONS (3)
  - VOMITING [None]
  - NAUSEA [None]
  - TRANSIENT ISCHAEMIC ATTACK [None]
